FAERS Safety Report 7895713-3 (Version None)
Quarter: 2011Q4

REPORT INFORMATION
  Report Type: 
  Country: None (occurrence: None)
  Receive Date: 20111027
  Receipt Date: 20110207
  Transmission Date: 20120403
  Serious: Yes (Other)
  Sender: FDA-Public Use
  Company Number: WAES 1102USA00955

PATIENT

DRUGS (1)
  1. MEVACOR [Suspect]
     Dosage: DAILY/PO
     Route: 048

REACTIONS (1)
  - RHABDOMYOLYSIS [None]
